FAERS Safety Report 14243400 (Version 3)
Quarter: 2017Q4

REPORT INFORMATION
  Report Type: Spontaneous
  Country: JP (occurrence: JP)
  Receive Date: 20171201
  Receipt Date: 20171211
  Transmission Date: 20180321
  Serious: Yes (Life-Threatening, Other)
  Sender: FDA-Public Use
  Company Number: JP-PFIZER INC-2017512944

PATIENT
  Age: 62 Year
  Sex: Male

DRUGS (2)
  1. CISPLATIN. [Suspect]
     Active Substance: CISPLATIN
     Indication: TRANSITIONAL CELL CARCINOMA METASTATIC
     Dosage: 70 MG/M2, CYCLIC (DAY 2; 3-WEEK REGIMEN)
     Dates: start: 20131014, end: 20131210
  2. GEMCITABINE HYDROCHLORIDE. [Suspect]
     Active Substance: GEMCITABINE HYDROCHLORIDE
     Indication: TRANSITIONAL CELL CARCINOMA METASTATIC
     Dosage: 1000 MG/M2, CYCLIC (DAY 1, 8, 15; 3-WEEK REGIMEN)
     Dates: start: 20131014, end: 20131210

REACTIONS (1)
  - Thrombocytopenia [Unknown]
